FAERS Safety Report 9849321 (Version 1)
Quarter: 2014Q1

REPORT INFORMATION
  Report Type: Spontaneous
  Country: DE (occurrence: DE)
  Receive Date: 20140128
  Receipt Date: 20140128
  Transmission Date: 20141002
  Serious: Yes (Hospitalization)
  Sender: FDA-Public Use
  Company Number: DE-FRI-1000053117

PATIENT
  Age: 99 Year
  Sex: Female

DRUGS (2)
  1. MEMANTINE [Suspect]
     Indication: DEMENTIA
     Dosage: 15 MG AT NOON
     Route: 048
  2. TIM-OPHTAL [Suspect]
     Indication: GLAUCOMA
     Route: 047
     Dates: end: 20140113

REACTIONS (1)
  - Heart rate decreased [Recovered/Resolved]
